FAERS Safety Report 5287830-1 (Version None)
Quarter: 2007Q1

REPORT INFORMATION
  Report Type: 
  Country: None (occurrence: None)
  Receive Date: 20070112
  Receipt Date: 20060324
  Transmission Date: 20070707
  Serious: Yes (Hospitalization)
  Sender: FDA-Public Use
  Company Number: PHEH2006US04016

PATIENT
  Sex: Male

DRUGS (1)
  1. FOCALIN [Suspect]
     Dosage: ^HIGH DOSE^

REACTIONS (1)
  - MULTIPLE ALLERGIES [None]
